FAERS Safety Report 17824921 (Version 1)
Quarter: 2020Q2

REPORT INFORMATION
  Report Type: Spontaneous
  Country: US (occurrence: US)
  Receive Date: 20200526
  Receipt Date: 20200526
  Transmission Date: 20200714
  Serious: No
  Sender: FDA-Public Use
  Company Number: US-PFIZER INC-2020205436

PATIENT
  Sex: Male

DRUGS (3)
  1. PREDNISONE. [Suspect]
     Active Substance: PREDNISONE
     Dosage: 20 MG
  2. AMLODIPINE BESILATE [Suspect]
     Active Substance: AMLODIPINE BESYLATE
     Dosage: 10 MG
  3. TIZANIDINE. [Suspect]
     Active Substance: TIZANIDINE
     Dosage: 2 MG

REACTIONS (5)
  - Exostosis [Unknown]
  - Musculoskeletal discomfort [Unknown]
  - Gait inability [Unknown]
  - Hypokinesia [Unknown]
  - Sciatica [Unknown]
